FAERS Safety Report 8203074-5 (Version None)
Quarter: 2012Q1

REPORT INFORMATION
  Report Type: 
  Country: None (occurrence: None)
  Receive Date: 20120312
  Receipt Date: 20120307
  Transmission Date: 20120608
  Serious: Yes (Death, Hospitalization, Other)
  Sender: FDA-Public Use
  Company Number: JP-CELGENEUS-087-50794-11082597

PATIENT
  Age: 80 Year
  Sex: Male

DRUGS (8)
  1. MAGNESIUM OXIDE [Concomitant]
     Dosage: 1 GRAM
     Route: 048
     Dates: start: 20110701, end: 20110812
  2. NINJIN-YOEI-TO [Concomitant]
     Dosage: 3 DOSAGE FORMS
     Route: 048
     Dates: end: 20110812
  3. ALLOPURINOL [Concomitant]
     Dosage: 100 MILLIGRAM
     Route: 048
     Dates: end: 20110809
  4. PURSENNID [Concomitant]
     Dosage: 12 MILLIGRAM
     Route: 048
     Dates: start: 20110701, end: 20110812
  5. VIDAZA [Suspect]
     Indication: MYELODYSPLASTIC SYNDROME
     Dosage: 75 MILLIGRAM/SQ. METER
     Route: 058
     Dates: start: 20110620, end: 20110802
  6. VESICARE [Concomitant]
     Dosage: 5 MILLIGRAM
     Route: 048
     Dates: end: 20110809
  7. URALYT-U [Concomitant]
     Dosage: 3 GRAM
     Route: 048
     Dates: end: 20110812
  8. URIEF [Concomitant]
     Dosage: 8 MILLIGRAM
     Route: 048
     Dates: end: 20110812

REACTIONS (3)
  - SUBDURAL HAEMATOMA [None]
  - RENAL FAILURE [None]
  - PLATELET COUNT DECREASED [None]
